FAERS Safety Report 6846241-5 (Version None)
Quarter: 2010Q3

REPORT INFORMATION
  Report Type: 
  Country: None (occurrence: None)
  Receive Date: 20100715
  Receipt Date: 20070917
  Transmission Date: 20110219
  Serious: Yes (Other)
  Sender: FDA-Public Use
  Company Number: US-PFIZER INC-2007078034

PATIENT
  Sex: Female
  Weight: 84.8 kg

DRUGS (3)
  1. CHANTIX [Suspect]
     Indication: SMOKING CESSATION THERAPY
     Dates: start: 20070913
  2. LISINOPRIL [Concomitant]
  3. DILTIAZEM [Concomitant]

REACTIONS (3)
  - BLOOD PRESSURE INCREASED [None]
  - NERVOUSNESS [None]
  - PALPITATIONS [None]
